FAERS Safety Report 19392220 (Version 1)
Quarter: 2021Q2

REPORT INFORMATION
  Report Type: Spontaneous
  Country: TR (occurrence: TR)
  Receive Date: 20210608
  Receipt Date: 20210608
  Transmission Date: 20210717
  Serious: Yes (Other)
  Sender: FDA-Public Use
  Company Number: TR-PFIZER INC-2021616672

PATIENT
  Age: 47 Year
  Sex: Female

DRUGS (1)
  1. LORVIQUA [Suspect]
     Active Substance: LORLATINIB
     Dosage: 100 MG

REACTIONS (5)
  - Respiratory distress [Unknown]
  - Tinnitus [Unknown]
  - Hallucination [Unknown]
  - Balance disorder [Unknown]
  - Dyspnoea exertional [Unknown]
